FAERS Safety Report 19808550 (Version 1)
Quarter: 2021Q3

REPORT INFORMATION
  Report Type: Spontaneous
  Country: JP (occurrence: JP)
  Receive Date: 20210908
  Receipt Date: 20210908
  Transmission Date: 20211014
  Serious: Yes (Other)
  Sender: FDA-Public Use
  Company Number: JP-PFIZER INC-202101128288

PATIENT

DRUGS (1)
  1. RHEUMATREX [Suspect]
     Active Substance: METHOTREXATE SODIUM
     Route: 048

REACTIONS (8)
  - Nephrotic syndrome [Unknown]
  - Oedema peripheral [Unknown]
  - Oedema [Unknown]
  - Liver disorder [Unknown]
  - Hypoalbuminaemia [Unknown]
  - Blood albumin decreased [Unknown]
  - Eczema [Unknown]
  - Face oedema [Unknown]
